FAERS Safety Report 25757658 (Version 1)
Quarter: 2025Q3

REPORT INFORMATION
  Report Type: Spontaneous
  Country: EU (occurrence: EU)
  Receive Date: 20250903
  Receipt Date: 20250903
  Transmission Date: 20251021
  Serious: Yes (Hospitalization)
  Sender: MYLAN
  Company Number: None

PATIENT
  Age: 77 Year
  Sex: Female
  Weight: 74 kg

DRUGS (24)
  1. AMLODIPINE [Suspect]
     Active Substance: AMLODIPINE BESYLATE
     Indication: Hypertension
     Dosage: 10 MILLIGRAM, QD
     Dates: start: 20250626, end: 20250709
  2. AMLODIPINE [Suspect]
     Active Substance: AMLODIPINE BESYLATE
     Dosage: 10 MILLIGRAM, QD
     Route: 048
     Dates: start: 20250626, end: 20250709
  3. AMLODIPINE [Suspect]
     Active Substance: AMLODIPINE BESYLATE
     Dosage: 10 MILLIGRAM, QD
     Route: 048
     Dates: start: 20250626, end: 20250709
  4. AMLODIPINE [Suspect]
     Active Substance: AMLODIPINE BESYLATE
     Dosage: 10 MILLIGRAM, QD
     Dates: start: 20250626, end: 20250709
  5. FLUOXETINE [Suspect]
     Active Substance: FLUOXETINE HYDROCHLORIDE
     Indication: Depression
     Dosage: 20 MILLIGRAM, QD
     Dates: start: 20250621, end: 20250711
  6. FLUOXETINE [Suspect]
     Active Substance: FLUOXETINE HYDROCHLORIDE
     Dosage: 20 MILLIGRAM, QD
     Route: 048
     Dates: start: 20250621, end: 20250711
  7. FLUOXETINE [Suspect]
     Active Substance: FLUOXETINE HYDROCHLORIDE
     Dosage: 20 MILLIGRAM, QD
     Route: 048
     Dates: start: 20250621, end: 20250711
  8. FLUOXETINE [Suspect]
     Active Substance: FLUOXETINE HYDROCHLORIDE
     Dosage: 20 MILLIGRAM, QD
     Dates: start: 20250621, end: 20250711
  9. IRBESARTAN [Suspect]
     Active Substance: IRBESARTAN
     Indication: Hypertension
     Dosage: 150 MILLIGRAM, QD
     Dates: start: 20250622, end: 20250710
  10. IRBESARTAN [Suspect]
     Active Substance: IRBESARTAN
     Dosage: 150 MILLIGRAM, QD
     Route: 048
     Dates: start: 20250622, end: 20250710
  11. IRBESARTAN [Suspect]
     Active Substance: IRBESARTAN
     Dosage: 150 MILLIGRAM, QD
     Route: 048
     Dates: start: 20250622, end: 20250710
  12. IRBESARTAN [Suspect]
     Active Substance: IRBESARTAN
     Dosage: 150 MILLIGRAM, QD
     Dates: start: 20250622, end: 20250710
  13. ATORVASTATIN [Suspect]
     Active Substance: ATORVASTATIN
     Indication: Ischaemic stroke
     Dates: start: 20250617, end: 20250709
  14. ATORVASTATIN [Suspect]
     Active Substance: ATORVASTATIN
     Route: 048
     Dates: start: 20250617, end: 20250709
  15. ATORVASTATIN [Suspect]
     Active Substance: ATORVASTATIN
     Route: 048
     Dates: start: 20250617, end: 20250709
  16. ATORVASTATIN [Suspect]
     Active Substance: ATORVASTATIN
     Dates: start: 20250617, end: 20250709
  17. FLUCONAZOLE [Suspect]
     Active Substance: FLUCONAZOLE
     Indication: Oesophageal candidiasis
     Dosage: 200 MILLIGRAM, QD
     Dates: start: 20250704, end: 20250706
  18. FLUCONAZOLE [Suspect]
     Active Substance: FLUCONAZOLE
     Dosage: 200 MILLIGRAM, QD
     Route: 042
     Dates: start: 20250704, end: 20250706
  19. FLUCONAZOLE [Suspect]
     Active Substance: FLUCONAZOLE
     Dosage: 200 MILLIGRAM, QD
     Route: 042
     Dates: start: 20250704, end: 20250706
  20. FLUCONAZOLE [Suspect]
     Active Substance: FLUCONAZOLE
     Dosage: 200 MILLIGRAM, QD
     Dates: start: 20250704, end: 20250706
  21. LOVENOX [Suspect]
     Active Substance: ENOXAPARIN SODIUM
     Indication: Thrombosis prophylaxis
     Dosage: 400 MILLIGRAM, QD
     Dates: start: 20250615, end: 20250718
  22. LOVENOX [Suspect]
     Active Substance: ENOXAPARIN SODIUM
     Dosage: 400 MILLIGRAM, QD
     Route: 058
     Dates: start: 20250615, end: 20250718
  23. LOVENOX [Suspect]
     Active Substance: ENOXAPARIN SODIUM
     Dosage: 400 MILLIGRAM, QD
     Route: 058
     Dates: start: 20250615, end: 20250718
  24. LOVENOX [Suspect]
     Active Substance: ENOXAPARIN SODIUM
     Dosage: 400 MILLIGRAM, QD
     Dates: start: 20250615, end: 20250718

REACTIONS (1)
  - Pemphigoid [Recovered/Resolved]

NARRATIVE: CASE EVENT DATE: 20250706
